FAERS Safety Report 6666737-9 (Version None)
Quarter: 2010Q1

REPORT INFORMATION
  Report Type: 
  Country: None (occurrence: None)
  Receive Date: 20100331
  Receipt Date: 20100326
  Transmission Date: 20100710
  Serious: Yes (Death, Life-Threatening, Hospitalization)
  Sender: FDA-Public Use
  Company Number: 2009SP036558

PATIENT
  Age: 61 Year
  Sex: Male

DRUGS (19)
  1. TEMODAL [Suspect]
     Indication: ASTROCYTOMA
     Dosage: 200 MG/M2, QD; PO
     Route: 048
     Dates: start: 20060225, end: 20060913
  2. TEMODAL [Suspect]
     Indication: ASTROCYTOMA
     Dosage: 200 MG/M2, QD; PO
     Route: 048
     Dates: start: 20061007, end: 20061011
  3. TEMODAL [Suspect]
     Indication: ASTROCYTOMA
     Dosage: 200 MG/M2, QD; PO
     Route: 048
     Dates: start: 20061111, end: 20061115
  4. TEMODAL [Suspect]
     Indication: ASTROCYTOMA
     Dosage: 200 MG/M2, QD; PO
     Route: 048
     Dates: start: 20061209, end: 20061213
  5. TEMODAL [Suspect]
     Indication: ASTROCYTOMA
     Dosage: 200 MG/M2, QD; PO
     Route: 048
     Dates: start: 20070106, end: 20070110
  6. TEMODAL [Suspect]
     Indication: ASTROCYTOMA
     Dosage: 200 MG/M2, QD; PO
     Route: 048
     Dates: start: 20070203, end: 20070207
  7. TEMODAL [Suspect]
     Indication: ASTROCYTOMA
     Dosage: 200 MG/M2, QD; PO
     Route: 048
     Dates: start: 20070303, end: 20070307
  8. TEMODAL [Suspect]
     Indication: ASTROCYTOMA
     Dosage: 200 MG/M2, QD; PO
     Route: 048
     Dates: start: 20070331, end: 20070404
  9. TEMODAL [Suspect]
     Indication: ASTROCYTOMA
     Dosage: 200 MG/M2, QD; PO
     Route: 048
     Dates: start: 20070428, end: 20070502
  10. TEMODAL [Suspect]
     Indication: ASTROCYTOMA
     Dosage: 200 MG/M2, QD; PO
     Route: 048
     Dates: start: 20070526, end: 20070530
  11. TEMODAL [Suspect]
     Indication: ASTROCYTOMA
     Dosage: 200 MG/M2, QD; PO
     Route: 048
     Dates: start: 20070630, end: 20070704
  12. TEMODAL [Suspect]
     Indication: ASTROCYTOMA
     Dosage: 200 MG/M2, QD; PO
     Route: 048
     Dates: start: 20070728, end: 20070801
  13. TEMODAL [Suspect]
     Indication: ASTROCYTOMA
     Dosage: 200 MG/M2, QD; PO
     Route: 048
     Dates: start: 20070825, end: 20070829
  14. TEMODAL [Suspect]
     Indication: ASTROCYTOMA
     Dosage: 200 MG/M2, QD; PO
     Route: 048
     Dates: start: 20070922, end: 20070926
  15. TEMODAL [Suspect]
     Indication: ASTROCYTOMA
     Dosage: 200 MG/M2, QD; PO
     Route: 048
     Dates: start: 20071020, end: 20071024
  16. TEMODAL [Suspect]
     Indication: ASTROCYTOMA
     Dosage: 200 MG/M2, QD; PO
     Route: 048
     Dates: start: 20071117, end: 20071121
  17. TEMODAL [Suspect]
     Indication: ASTROCYTOMA
     Dosage: 200 MG/M2, QD; PO
     Route: 048
     Dates: start: 20071214, end: 20071218
  18. NIMUSTINE HYDROCHLORIDE (NIMUSTINE HYDROCHLORIDE) [Suspect]
     Indication: DRUG USE FOR UNKNOWN INDICATION
     Dates: start: 20051007, end: 20051209
  19. DEPAKENE [Suspect]
     Indication: PROPHYLAXIS
     Dosage: PO
     Route: 048

REACTIONS (7)
  - BLOOD LACTATE DEHYDROGENASE INCREASED [None]
  - COAGULOPATHY [None]
  - DISSEMINATED INTRAVASCULAR COAGULATION [None]
  - HISTIOCYTOSIS HAEMATOPHAGIC [None]
  - INFECTION [None]
  - MYELODYSPLASTIC SYNDROME TRANSFORMATION [None]
  - RENAL FAILURE [None]
